FAERS Safety Report 15035555 (Version 2)
Quarter: 2019Q1

REPORT INFORMATION
  Report Type: Spontaneous
  Country: US (occurrence: US)
  Receive Date: 20180620
  Receipt Date: 20190130
  Transmission Date: 20190417
  Serious: Yes (Other)
  Sender: FDA-Public Use
  Company Number: US-MYLANLABS-2018M1041936

PATIENT
  Age: 46 Year
  Sex: Female

DRUGS (4)
  1. BUDESONIDE. [Suspect]
     Active Substance: BUDESONIDE
     Indication: GASTROINTESTINAL DISORDER
     Route: 065
  2. PREDNISONE. [Concomitant]
     Active Substance: PREDNISONE
     Indication: AUTOIMMUNE ENTEROPATHY
     Dosage: HIGH DOSE; DOSE WAS TAPERED LATER WITH THE ADDITION OF MERCAPTOPURINE
     Route: 065
  3. MESALAZINE [Suspect]
     Active Substance: MESALAMINE
     Indication: GASTROINTESTINAL DISORDER
     Route: 065
  4. MERCAPTOPURINE. [Suspect]
     Active Substance: MERCAPTOPURINE
     Indication: GASTROINTESTINAL DISORDER
     Dosage: 75 MILLIGRAM
     Route: 065

REACTIONS (4)
  - Leukopenia [Unknown]
  - Peripheral swelling [Unknown]
  - Nausea [Unknown]
  - Decreased appetite [Unknown]
